FAERS Safety Report 9924057 (Version 1)
Quarter: 2014Q1

REPORT INFORMATION
  Report Type: Spontaneous
  Country: IT (occurrence: IT)
  Receive Date: 20140225
  Receipt Date: 20140225
  Transmission Date: 20141002
  Serious: Yes (Hospitalization)
  Sender: FDA-Public Use
  Company Number: IT-MYLANLABS-2014S1003359

PATIENT
  Age: 80 Year
  Sex: Male

DRUGS (9)
  1. METFORMIN HYDROCHLORIDE [Suspect]
     Indication: DIABETES MELLITUS
     Dosage: 1500 MG DAILY
     Route: 048
     Dates: start: 20120101, end: 20140112
  2. HUMALOG [Suspect]
     Indication: DIABETES MELLITUS
     Dosage: 30 LU DAILY
     Route: 058
     Dates: start: 20120101, end: 20140112
  3. HUMULIN [Suspect]
     Indication: DIABETES MELLITUS
     Dosage: 10 LU DAILY
     Route: 058
     Dates: start: 20120101, end: 20140112
  4. TRIATEC [Concomitant]
     Indication: HYPERTENSION
  5. ZYLORIC [Concomitant]
     Indication: PRODUCT USED FOR UNKNOWN INDICATION
  6. COAPROVEL [Concomitant]
     Indication: HYPERTENSION
     Dosage: 150 MG /12.5 MG
  7. CARDURA [Concomitant]
     Indication: PRODUCT USED FOR UNKNOWN INDICATION
  8. SEROQUEL [Concomitant]
     Indication: SENILE DEMENTIA
  9. ACETYLSALICYLIC ACID [Concomitant]
     Indication: PRODUCT USED FOR UNKNOWN INDICATION

REACTIONS (1)
  - Hypoglycaemic coma [Recovered/Resolved]
